FAERS Safety Report 10657000 (Version 1)
Quarter: 2014Q4

REPORT INFORMATION
  Report Type: Spontaneous
  Country: MX (occurrence: None)
  Receive Date: 20141215
  Receipt Date: 20141215
  Transmission Date: 20150529
  Serious: No
  Sender: FDA-Public Use
  Company Number: MX2014GSK025701

PATIENT
  Age: 56 Year
  Sex: Female

DRUGS (6)
  1. ATEMPERATOR (MAGNESIUM VALPROATE) (VALPROATE MAGNESIUM) [Concomitant]
  2. LEVOTHYROXINE (LEVOTHYROXINE) [Concomitant]
     Active Substance: LEVOTHYROXINE
  3. ZOLPIDEM (ZOLPIDEM) [Concomitant]
     Active Substance: ZOLPIDEM TARTRATE
  4. AROPAX [Suspect]
     Active Substance: PAROXETINE HYDROCHLORIDE
     Indication: DEPRESSION
     Route: 048
  5. ZOFILIP (FENOFIBRATE + SIMVASTATIN) [Concomitant]
  6. DIOVAN [Suspect]
     Active Substance: VALSARTAN
     Indication: HYPERTENSION
     Route: 048

REACTIONS (5)
  - Blood pressure increased [None]
  - Eye infection [None]
  - Drug dose omission [None]
  - Treatment noncompliance [None]
  - Eye haemorrhage [None]

NARRATIVE: CASE EVENT DATE: 201411
